FAERS Safety Report 4386087-3 (Version None)
Quarter: 2004Q2

REPORT INFORMATION
  Report Type: 
  Country: None (occurrence: None)
  Receive Date: 20040615
  Receipt Date: 20030821
  Transmission Date: 20050107
  Serious: Yes (Other)
  Sender: FDA-Public Use
  Company Number: 2003MP001365

PATIENT
  Age: 69 Year
  Sex: Female
  Weight: 82.5547 kg

DRUGS (2)
  1. DIDRONEL [Suspect]
     Indication: HYPERCALCAEMIA
     Dosage: 600 MG; QDX3; IV
     Route: 042
     Dates: start: 20030731, end: 20030803
  2. IBUPROFEN ^BOOTS^ [Concomitant]

REACTIONS (1)
  - RENAL FAILURE ACUTE [None]
